FAERS Safety Report 5585109-1 (Version None)
Quarter: 2008Q1

REPORT INFORMATION
  Report Type: 
  Country: None (occurrence: None)
  Receive Date: 20080109
  Receipt Date: 20071213
  Transmission Date: 20080703
  Serious: No
  Sender: FDA-Public Use
  Company Number: US-BOEHRINGER INGELHEIM PHARMACEUTICALS, INC.-2007-BP-26196BP

PATIENT
  Sex: Female

DRUGS (10)
  1. ZANTAC 75 [Suspect]
     Indication: DYSPEPSIA
     Route: 048
     Dates: end: 20071101
  2. ZANTAC 75 [Suspect]
  3. LEVOXYL [Concomitant]
  4. CELEBREX [Concomitant]
  5. ARTANE [Concomitant]
  6. FERROUS SULFATE TAB [Concomitant]
  7. BENADRYL [Concomitant]
  8. FIBERCON [Concomitant]
  9. MULTI-VITAMIN [Concomitant]
  10. EVISTA [Concomitant]

REACTIONS (2)
  - HEADACHE [None]
  - NAUSEA [None]
